FAERS Safety Report 13886600 (Version 1)
Quarter: 2017Q3

REPORT INFORMATION
  Report Type: Spontaneous
  Country: US (occurrence: US)
  Receive Date: 20170821
  Receipt Date: 20170821
  Transmission Date: 20171127
  Serious: No
  Sender: FDA-Public Use
  Company Number: US-ALLERGAN-1701914US

PATIENT
  Sex: Male

DRUGS (4)
  1. ANDRODERM [Suspect]
     Active Substance: TESTOSTERONE
     Indication: BLOOD TESTOSTERONE
     Dosage: 4 MG, 2 PATCHES APPLIED ONCE DAILY
     Route: 062
     Dates: start: 2012
  2. ANDRODERM [Suspect]
     Active Substance: TESTOSTERONE
     Dosage: 4 MG, 2 PATCHES APPLIED ONCE DAILY
     Route: 062
  3. ANDRODERM [Suspect]
     Active Substance: TESTOSTERONE
     Dosage: 4 MG, 2 PATCHES APPLIED ONCE DAILY
     Route: 062
  4. ANDRODERM [Suspect]
     Active Substance: TESTOSTERONE
     Dosage: 4 MG, 2 PATCHES APPLIED ONCE DAILY
     Route: 062

REACTIONS (9)
  - Malaise [Recovered/Resolved]
  - Drug ineffective [Unknown]
  - Wrong technique in product usage process [Unknown]
  - Asthenopia [Recovered/Resolved]
  - Product quality issue [Unknown]
  - Fatigue [Recovered/Resolved]
  - Product adhesion issue [Unknown]
  - Product physical consistency issue [Unknown]
  - Intentional product misuse [Unknown]

NARRATIVE: CASE EVENT DATE: 2012
